FAERS Safety Report 20478928 (Version 6)
Quarter: 2022Q2

REPORT INFORMATION
  Report Type: Spontaneous
  Country: CZ (occurrence: CZ)
  Receive Date: 20220216
  Receipt Date: 20220613
  Transmission Date: 20220720
  Serious: Yes (Hospitalization, Other)
  Sender: FDA-Public Use
  Company Number: CZ-GLENMARK PHARMACEUTICALS-2021GMK069257

PATIENT
  Age: 59 Year
  Sex: Female
  Weight: 64.9 kg

DRUGS (33)
  1. RISPERIDONE [Suspect]
     Active Substance: RISPERIDONE
     Indication: Schizophrenia
     Dosage: UNK
     Route: 065
  2. RISPERIDONE [Suspect]
     Active Substance: RISPERIDONE
     Indication: Antipsychotic therapy
  3. HALOPERIDOL [Suspect]
     Active Substance: HALOPERIDOL
     Indication: Schizophrenia
     Dosage: UNK
     Route: 065
  4. HALOPERIDOL [Suspect]
     Active Substance: HALOPERIDOL
     Indication: Antipsychotic therapy
     Dosage: UNK
     Route: 065
  5. PALIPERIDONE PALMITATE [Suspect]
     Active Substance: PALIPERIDONE PALMITATE
     Indication: Schizophrenia
     Route: 030
     Dates: start: 200907
  6. PALIPERIDONE PALMITATE [Suspect]
     Active Substance: PALIPERIDONE PALMITATE
     Indication: Schizophrenia
     Route: 065
  7. PALIPERIDONE PALMITATE [Suspect]
     Active Substance: PALIPERIDONE PALMITATE
     Indication: Antipsychotic therapy
     Route: 030
  8. RISPERDAL CONSTA [Suspect]
     Active Substance: RISPERIDONE
     Indication: Schizophrenia
     Route: 030
  9. RISPERDAL CONSTA [Suspect]
     Active Substance: RISPERIDONE
     Indication: Antipsychotic therapy
     Route: 030
  10. RISPERDAL CONSTA [Suspect]
     Active Substance: RISPERIDONE
     Route: 030
  11. RISPERDAL CONSTA [Suspect]
     Active Substance: RISPERIDONE
  12. CLOZAPINE [Suspect]
     Active Substance: CLOZAPINE
     Indication: Schizophrenia
     Dosage: UNK
     Route: 065
  13. CLOZAPINE [Suspect]
     Active Substance: CLOZAPINE
     Indication: Antipsychotic therapy
     Dosage: UNK
     Route: 065
  14. CLOZAPINE [Suspect]
     Active Substance: CLOZAPINE
     Indication: Schizophrenia
  15. BREXPIPRAZOLE [Suspect]
     Active Substance: BREXPIPRAZOLE
     Indication: Schizophrenia
     Dosage: UNK
     Route: 065
  16. BREXPIPRAZOLE [Suspect]
     Active Substance: BREXPIPRAZOLE
     Indication: Antipsychotic therapy
     Dosage: UNK
     Route: 065
  17. BREXPIPRAZOLE [Suspect]
     Active Substance: BREXPIPRAZOLE
     Indication: Schizophrenia
     Dosage: INCREASED TO 111 MG, OVERDOSE: 111MG/DAY
     Route: 065
  18. QUETIAPINE [Suspect]
     Active Substance: QUETIAPINE
     Indication: Schizophrenia
     Dosage: UNK
     Route: 065
  19. QUETIAPINE [Suspect]
     Active Substance: QUETIAPINE
     Indication: Antipsychotic therapy
  20. ARIPIPRAZOLE [Suspect]
     Active Substance: ARIPIPRAZOLE
     Indication: Schizophrenia
     Dosage: UNK
     Route: 065
  21. ARIPIPRAZOLE [Suspect]
     Active Substance: ARIPIPRAZOLE
     Indication: Antipsychotic therapy
  22. ARIPIPRAZOLE [Suspect]
     Active Substance: ARIPIPRAZOLE
     Indication: Schizophrenia
  23. SERTINDOLE [Suspect]
     Active Substance: SERTINDOLE
     Indication: Schizophrenia
     Dosage: UNK
     Route: 065
  24. SERTINDOLE [Suspect]
     Active Substance: SERTINDOLE
     Indication: Antipsychotic therapy
  25. SERTINDOLE [Suspect]
     Active Substance: SERTINDOLE
     Indication: Schizophrenia
  26. LEVOMEPROMAZINE [Suspect]
     Active Substance: LEVOMEPROMAZINE
     Indication: Schizophrenia
     Dosage: UNK
     Route: 065
  27. LEVOMEPROMAZINE [Suspect]
     Active Substance: LEVOMEPROMAZINE
     Indication: Antipsychotic therapy
  28. LEVOMEPROMAZINE [Suspect]
     Active Substance: LEVOMEPROMAZINE
     Indication: Schizophrenia
  29. OLANZAPINE [Suspect]
     Active Substance: OLANZAPINE
     Indication: Schizophrenia
     Dosage: UNK
     Route: 065
  30. OLANZAPINE [Suspect]
     Active Substance: OLANZAPINE
     Indication: Antipsychotic therapy
  31. OLANZAPINE [Suspect]
     Active Substance: OLANZAPINE
     Indication: Schizophrenia
  32. FLUPENTIXOL [Suspect]
     Active Substance: FLUPENTIXOL
     Indication: Antipsychotic therapy
     Route: 030
     Dates: start: 200907
  33. LURASIDONE [Concomitant]
     Active Substance: LURASIDONE
     Dosage: MAXIMUM DOSE OF 148 MG PER DAY
     Route: 065

REACTIONS (15)
  - Hyperprolactinaemia [Recovered/Resolved]
  - Hypotension [Recovered/Resolved]
  - Weight increased [Recovered/Resolved]
  - Therapy non-responder [Unknown]
  - Tremor [Recovered/Resolved]
  - Treatment noncompliance [Unknown]
  - Sedation [Unknown]
  - Depression [Unknown]
  - Insomnia [Unknown]
  - Schizophrenia [Recovering/Resolving]
  - Lethargy [Unknown]
  - Anxiety [Unknown]
  - Fatigue [Unknown]
  - Sedation complication [Recovered/Resolved]
  - Tremor [Unknown]

NARRATIVE: CASE EVENT DATE: 20091201
